FAERS Safety Report 23092685 (Version 1)
Quarter: 2023Q4

REPORT INFORMATION
  Report Type: Spontaneous
  Country: NO (occurrence: NO)
  Receive Date: 20231021
  Receipt Date: 20231021
  Transmission Date: 20240109
  Serious: Yes (Hospitalization)
  Sender: FDA-Public Use
  Company Number: None

PATIENT
  Age: 34 Year
  Sex: Female
  Weight: 62 kg

DRUGS (16)
  1. TRAMADOL [Suspect]
     Active Substance: TRAMADOL\TRAMADOL HYDROCHLORIDE
     Indication: Cervicogenic headache
     Dosage: 1-2 CAPSULES UP TO THREE TIMES DAILY,
     Dates: start: 20230309, end: 20230611
  2. TRAMADOL [Suspect]
     Active Substance: TRAMADOL\TRAMADOL HYDROCHLORIDE
     Indication: Headache
  3. TRAMADOL [Suspect]
     Active Substance: TRAMADOL\TRAMADOL HYDROCHLORIDE
     Indication: Pain
  4. AMITRIPTYLINE HYDROCHLORIDE [Suspect]
     Active Substance: AMITRIPTYLINE HYDROCHLORIDE
     Indication: Anxiety
     Dosage: ONE TABLET IN THE EVENING, MAY BE INCREASED GRADUALLY WITH ONE TABLET PER WEEK UP TO AT LEAST THREE
     Dates: start: 20230331, end: 20230611
  5. AMITRIPTYLINE HYDROCHLORIDE [Suspect]
     Active Substance: AMITRIPTYLINE HYDROCHLORIDE
     Indication: Pain
  6. AMITRIPTYLINE HYDROCHLORIDE [Suspect]
     Active Substance: AMITRIPTYLINE HYDROCHLORIDE
     Indication: Tension
  7. VIMOVO [Suspect]
     Active Substance: ESOMEPRAZOLE MAGNESIUM\NAPROXEN
     Indication: Pain
     Dosage: 2 DOSAGE FORMS DAILY; ONE TABLET MORNING, ONE TABLET EVENING. FOR ACTIVE INGREDIENT ESOMEPRAZOLE THE
     Dates: start: 20230508, end: 20230611
  8. VENLAFAXINE HYDROCHLORIDE [Concomitant]
     Active Substance: VENLAFAXINE HYDROCHLORIDE
     Indication: Panic attack
     Dosage: 1 DOSAGE FORMS DAILY; ONE CAPSULE IN THE EVENING.
     Dates: start: 20210428, end: 20230611
  9. ZOLOFT [Concomitant]
     Active Substance: SERTRALINE HYDROCHLORIDE
     Indication: Depression
     Dosage: 2 DOSAGE FORMS DAILY; 2 TABLETS IN THE EVENING.
     Dates: start: 20201026
  10. ZOLOFT [Concomitant]
     Active Substance: SERTRALINE HYDROCHLORIDE
     Indication: Anxiety
  11. LISDEXAMFETAMINE DIMESYLATE [Concomitant]
     Active Substance: LISDEXAMFETAMINE DIMESYLATE
     Indication: Attention deficit hyperactivity disorder
     Dosage: 1 DOSAGE FORMS DAILY; 1 TABLET MORNING,
     Dates: start: 20210924
  12. LISDEXAMFETAMINE DIMESYLATE [Concomitant]
     Active Substance: LISDEXAMFETAMINE DIMESYLATE
     Indication: Attention deficit hyperactivity disorder
  13. VOLTAREN [Concomitant]
     Active Substance: DICLOFENAC SODIUM
     Indication: Sciatica
     Dosage: 1 TABLET UP TO 3 TIMES DAILY.
     Dates: start: 20210424, end: 20230611
  14. VOLTAREN [Concomitant]
     Active Substance: DICLOFENAC SODIUM
     Indication: Pain
  15. VALIUM [Concomitant]
     Active Substance: DIAZEPAM
     Indication: Restlessness
     Dosage: 1 DOSAGE FORMS DAILY; ONE TABLET IN THE EVENING.
     Dates: start: 20201005, end: 20230611
  16. VALIUM [Concomitant]
     Active Substance: DIAZEPAM
     Indication: Anxiety

REACTIONS (35)
  - Myalgia [Not Recovered/Not Resolved]
  - Breast pain [Not Recovered/Not Resolved]
  - Vomiting [Not Recovered/Not Resolved]
  - Limb discomfort [Not Recovered/Not Resolved]
  - Myalgia [Not Recovered/Not Resolved]
  - Gastrooesophageal reflux disease [Not Recovered/Not Resolved]
  - Breast discomfort [Not Recovered/Not Resolved]
  - Suffocation feeling [Not Recovered/Not Resolved]
  - Symphysiolysis [Not Recovered/Not Resolved]
  - Hangover [Not Recovered/Not Resolved]
  - Hyperhidrosis [Not Recovered/Not Resolved]
  - Gait disturbance [Not Recovered/Not Resolved]
  - Dysstasia [Not Recovered/Not Resolved]
  - Bone pain [Not Recovered/Not Resolved]
  - Cardiac discomfort [Not Recovered/Not Resolved]
  - Vomiting [Not Recovered/Not Resolved]
  - Pyrexia [Not Recovered/Not Resolved]
  - Headache [Not Recovered/Not Resolved]
  - Weight increased [Not Recovered/Not Resolved]
  - Muscle spasms [Not Recovered/Not Resolved]
  - Arthralgia [Not Recovered/Not Resolved]
  - Chest discomfort [Unknown]
  - Skin odour abnormal [Unknown]
  - Neck pain [Unknown]
  - Back pain [Unknown]
  - Paraesthesia [Unknown]
  - Pyrexia [Unknown]
  - Panic attack [Unknown]
  - Pain [Unknown]
  - Neuralgia [Unknown]
  - Fear [Unknown]
  - Respiration abnormal [Unknown]
  - Chest pain [Unknown]
  - Pain in extremity [Unknown]
  - Heart rate increased [Unknown]

NARRATIVE: CASE EVENT DATE: 20230420
